FAERS Safety Report 8377851-4 (Version None)
Quarter: 2012Q2

REPORT INFORMATION
  Report Type: 
  Country: None (occurrence: None)
  Receive Date: 20120522
  Receipt Date: 20120514
  Transmission Date: 20120825
  Serious: Yes (Hospitalization, Other)
  Sender: FDA-Public Use
  Company Number: US-MERCK-1111USA03250

PATIENT
  Age: 62 Year
  Sex: Female
  Weight: 54 kg

DRUGS (7)
  1. FOSAMAX [Suspect]
     Route: 048
     Dates: start: 19991217
  2. FOSAMAX [Suspect]
     Indication: OSTEOPOROSIS
     Route: 048
     Dates: start: 19950101, end: 20090101
  3. BONIVA [Concomitant]
     Route: 065
     Dates: start: 20090101
  4. FOSAMAX [Suspect]
     Route: 048
     Dates: start: 19991217
  5. CLARITIN-D [Concomitant]
     Route: 048
     Dates: start: 19990101
  6. ZYRTEC [Concomitant]
     Route: 065
  7. FOSAMAX [Suspect]
     Indication: OSTEOPENIA
     Route: 048
     Dates: start: 19950101, end: 20090101

REACTIONS (78)
  - HYPOXIA [None]
  - HYPERGLYCAEMIA [None]
  - UTERINE CANCER [None]
  - HEADACHE [None]
  - ABDOMINAL HERNIA [None]
  - ABDOMINAL DISCOMFORT [None]
  - PEPTIC ULCER [None]
  - HYPERTONIC BLADDER [None]
  - FRACTURE PAIN [None]
  - COLITIS [None]
  - ANXIETY [None]
  - DIARRHOEA [None]
  - PUBIS FRACTURE [None]
  - HUMERUS FRACTURE [None]
  - INTERVERTEBRAL DISC PROTRUSION [None]
  - STERNAL FRACTURE [None]
  - ENDOMETRIAL CANCER [None]
  - ADVERSE DRUG REACTION [None]
  - HAEMATOCHEZIA [None]
  - ARTHRITIS [None]
  - VERTEBRAL FORAMINAL STENOSIS [None]
  - URGE INCONTINENCE [None]
  - NEUROPATHY PERIPHERAL [None]
  - DYSPNOEA [None]
  - CATARACT [None]
  - DIVERTICULITIS [None]
  - DEPRESSION [None]
  - IMPAIRED HEALING [None]
  - HEAD INJURY [None]
  - RHINITIS ALLERGIC [None]
  - VOMITING [None]
  - PEPTIC ULCER HAEMORRHAGE [None]
  - POST-TRAUMATIC HEADACHE [None]
  - DRUG HYPERSENSITIVITY [None]
  - LACERATION [None]
  - INCISIONAL HERNIA [None]
  - DIVERTICULUM [None]
  - GALLBLADDER DISORDER [None]
  - GASTROOESOPHAGEAL REFLUX DISEASE [None]
  - TEMPORAL ARTERITIS [None]
  - ROTATOR CUFF SYNDROME [None]
  - NAUSEA [None]
  - POLYURIA [None]
  - POLYARTHRITIS [None]
  - MIGRAINE [None]
  - LIP OEDEMA [None]
  - IODINE ALLERGY [None]
  - DRUG INTOLERANCE [None]
  - FIBROMA [None]
  - HYPERCHOLESTEROLAEMIA [None]
  - RASH [None]
  - OSTEOPOROSIS [None]
  - UPPER RESPIRATORY TRACT INFECTION [None]
  - INSOMNIA [None]
  - FACE INJURY [None]
  - DEHYDRATION [None]
  - FALL [None]
  - PULMONARY EMBOLISM [None]
  - NECK PAIN [None]
  - MYOSITIS [None]
  - ARTHRALGIA [None]
  - HYPOGLYCAEMIA [None]
  - CONSTIPATION [None]
  - PAIN [None]
  - DEEP VEIN THROMBOSIS [None]
  - OSTEOARTHRITIS [None]
  - INCISIONAL HERNIA REPAIR [None]
  - MYALGIA [None]
  - LOW TURNOVER OSTEOPATHY [None]
  - DIABETES MELLITUS [None]
  - FEMUR FRACTURE [None]
  - SPINAL COLUMN STENOSIS [None]
  - CLOSTRIDIUM DIFFICILE COLITIS [None]
  - HERNIA [None]
  - TOOTH DISORDER [None]
  - FIBROMYALGIA [None]
  - BACK PAIN [None]
  - SPONDYLOLISTHESIS [None]
